FAERS Safety Report 8093102-2 (Version None)
Quarter: 2012Q1

REPORT INFORMATION
  Report Type: 
  Country: None (occurrence: None)
  Receive Date: 20120128
  Receipt Date: 20111026
  Transmission Date: 20120608
  Serious: No
  Sender: FDA-Public Use
  Company Number: US-ABBOTT-11P-163-0840053-00

PATIENT
  Age: 64 Year
  Sex: Female

DRUGS (9)
  1. HUMIRA [Suspect]
     Indication: PSORIASIS
     Dates: start: 20110401
  2. ACCUPRIL [Concomitant]
     Indication: HYPERTENSION
     Route: 048
  3. ASPIRIN [Concomitant]
     Indication: PROPHYLAXIS
     Route: 048
  4. ALLEGRA [Concomitant]
     Indication: HYPERSENSITIVITY
  5. TOPROL-XL [Concomitant]
     Indication: HYPERTENSION
     Route: 048
  6. ZOCOR [Concomitant]
     Indication: BLOOD CHOLESTEROL
     Dosage: AT BEDTIME
     Route: 048
     Dates: start: 20070101
  7. SINGULAIR [Concomitant]
     Indication: ASTHMA
  8. SINGULAIR [Concomitant]
     Indication: HYPERSENSITIVITY
     Dosage: AT BEDTIME
     Route: 048
  9. PREMARIN [Concomitant]
     Indication: PRODUCT USED FOR UNKNOWN INDICATION

REACTIONS (9)
  - HYPERSENSITIVITY [None]
  - INSOMNIA [None]
  - RHINITIS [None]
  - PSORIASIS [None]
  - SKIN MASS [None]
  - CHEST DISCOMFORT [None]
  - FEELING ABNORMAL [None]
  - SINUSITIS [None]
  - DRUG INEFFECTIVE [None]
